FAERS Safety Report 7368873-0 (Version None)
Quarter: 2011Q1

REPORT INFORMATION
  Report Type: 
  Country: None (occurrence: None)
  Receive Date: 20110323
  Receipt Date: 20110321
  Transmission Date: 20110831
  Serious: Yes (Death)
  Sender: FDA-Public Use
  Company Number: FR-PFIZER INC-2011062390

PATIENT
  Age: 7 Year
  Sex: Female

DRUGS (5)
  1. ZARONTIN [Suspect]
     Indication: ENCEPHALOPATHY
     Dosage: 3.7 ML, 2X/DAY
     Route: 048
     Dates: end: 20100716
  2. STIRIPENTOL [Suspect]
     Indication: ENCEPHALOPATHY
     Dosage: 250 MG, 2X/DAY
     Route: 048
     Dates: end: 20100716
  3. RIVOTRIL [Suspect]
     Route: 048
  4. VALPROATE SODIUM/VALPROIC ACID [Suspect]
     Dosage: 300 MG, 1X/DAY
     Route: 048
     Dates: end: 20100716
  5. TOPIRAMATE [Suspect]
     Dosage: 10 MG, 2X/DAY
     Route: 048
     Dates: end: 20100716

REACTIONS (5)
  - RENAL FAILURE ACUTE [None]
  - HYPERTHERMIA [None]
  - RHABDOMYOLYSIS [None]
  - STATUS EPILEPTICUS [None]
  - ACUTE HEPATIC FAILURE [None]
